FAERS Safety Report 9057355 (Version 1)
Quarter: 2013Q1

REPORT INFORMATION
  Report Type: Spontaneous
  Country: CH (occurrence: CH)
  Receive Date: 20130204
  Receipt Date: 20130204
  Transmission Date: 20140127
  Serious: Yes (Death, Hospitalization)
  Sender: FDA-Public Use
  Company Number: PHHY2013CH009385

PATIENT
  Age: 77 Year
  Sex: Male

DRUGS (7)
  1. METHOTREXATE [Suspect]
     Indication: MYCOSIS FUNGOIDES
     Dosage: 10 MG/M2, QW
     Dates: start: 200611
  2. METHOTREXATE [Suspect]
     Dosage: 25 MG/M2, QW
     Dates: end: 2008
  3. METHOTREXATE [Suspect]
     Dosage: 15 MG/M2, QW
     Dates: start: 2008
  4. METHOTREXATE [Suspect]
     Dosage: 7.5 MG/M2, QW
     Dates: start: 2010
  5. CORTICOSTEROIDS [Concomitant]
  6. RITUXIMAB [Concomitant]
     Dosage: 375 MG/M2, QW (ADMINISTERED OVER 4 WEEKS)
  7. CAELYX [Concomitant]

REACTIONS (11)
  - Death [Fatal]
  - Necrotising retinitis [Unknown]
  - Bladder cancer [Unknown]
  - Retroperitoneal lymphadenopathy [Unknown]
  - Pulmonary mass [Unknown]
  - Diffuse large B-cell lymphoma [Unknown]
  - Epstein-Barr virus infection [Unknown]
  - Diverticulitis [Unknown]
  - Skin lesion [Unknown]
  - Skin mass [Unknown]
  - Pancytopenia [Unknown]
